FAERS Safety Report 21208757 (Version 1)
Quarter: 2022Q3

REPORT INFORMATION
  Report Type: Spontaneous
  Country: DE (occurrence: DE)
  Receive Date: 20220812
  Receipt Date: 20220812
  Transmission Date: 20221027
  Serious: Yes (Hospitalization, Other)
  Sender: FDA-Public Use
  Company Number: DE-NOVARTISPH-NVSC2022DE181729

PATIENT
  Age: 53 Year
  Sex: Male
  Weight: 105 kg

DRUGS (2)
  1. HYRIMOZ [Suspect]
     Active Substance: ADALIMUMAB-ADAZ
     Indication: Psoriasis
     Dosage: 40 MG, BIW
     Route: 058
     Dates: start: 20200127
  2. ACETAMINOPHEN [Concomitant]
     Active Substance: ACETAMINOPHEN
     Indication: Product used for unknown indication
     Dosage: UNK (AS NEEDED)
     Route: 065

REACTIONS (66)
  - COVID-19 pneumonia [Recovered/Resolved]
  - COVID-19 [Recovered/Resolved]
  - Cough [Unknown]
  - Dyspnoea [Unknown]
  - Respiratory tract infection [Unknown]
  - Chills [Unknown]
  - Pyrexia [Unknown]
  - Pneumonia [Recovered/Resolved]
  - Type 2 diabetes mellitus [Unknown]
  - Acute kidney injury [Unknown]
  - Inferior vena cava syndrome [Unknown]
  - Pneumonia streptococcal [Unknown]
  - Obesity [Unknown]
  - Flatulence [Unknown]
  - Headache [Unknown]
  - Condition aggravated [Unknown]
  - Decreased appetite [Unknown]
  - General physical health deterioration [Recovering/Resolving]
  - Hypoalbuminaemia [Unknown]
  - Hepatic steatosis [Unknown]
  - Gallbladder disorder [Unknown]
  - Pancreatic steatosis [Unknown]
  - Splenomegaly [Unknown]
  - Pleural effusion [Unknown]
  - Cardiomegaly [Unknown]
  - Red blood cell count decreased [Unknown]
  - Haemoglobin decreased [Unknown]
  - White blood cell count increased [Unknown]
  - Haematocrit decreased [Unknown]
  - Mean cell haemoglobin increased [Unknown]
  - Red cell distribution width increased [Unknown]
  - Platelet count increased [Unknown]
  - Activated partial thromboplastin time shortened [Unknown]
  - Aspartate aminotransferase increased [Unknown]
  - Gamma-glutamyltransferase increased [Unknown]
  - Blood alkaline phosphatase increased [Unknown]
  - Blood cholinesterase decreased [Unknown]
  - Blood creatine phosphokinase increased [Unknown]
  - Blood creatine phosphokinase MB increased [Unknown]
  - Blood lactate dehydrogenase increased [Unknown]
  - Blood sodium increased [Unknown]
  - Blood calcium decreased [Unknown]
  - Blood urea increased [Unknown]
  - Blood uric acid decreased [Unknown]
  - Blood triglycerides increased [Unknown]
  - High density lipoprotein decreased [Unknown]
  - C-reactive protein increased [Unknown]
  - N-terminal prohormone brain natriuretic peptide increased [Unknown]
  - Procalcitonin increased [Unknown]
  - Protein total decreased [Unknown]
  - Protein urine present [Unknown]
  - Urine protein/creatinine ratio increased [Unknown]
  - Blood parathyroid hormone decreased [Unknown]
  - Hepatitis B antigen positive [Unknown]
  - Back pain [Unknown]
  - Sinus tachycardia [Unknown]
  - Carboxyhaemoglobin increased [Unknown]
  - Blood lactic acid increased [Unknown]
  - Mean cell volume increased [Unknown]
  - Neutrophil count increased [Unknown]
  - Lymphocyte count decreased [Unknown]
  - Monocyte count increased [Unknown]
  - Fibrin D dimer increased [Unknown]
  - Alanine aminotransferase increased [Unknown]
  - Oxygen saturation decreased [Recovered/Resolved]
  - Inflammation [Unknown]

NARRATIVE: CASE EVENT DATE: 20220101
